FAERS Safety Report 5380210-X (Version None)
Quarter: 2007Q3

REPORT INFORMATION
  Report Type: 
  Country: None (occurrence: None)
  Receive Date: 20070706
  Receipt Date: 20070626
  Transmission Date: 20080115
  Serious: Yes (Hospitalization)
  Sender: FDA-Public Use
  Company Number: FR-AMGEN-US232223

PATIENT
  Age: 38 Year
  Sex: Male

DRUGS (5)
  1. ENBREL [Suspect]
     Indication: ANKYLOSING SPONDYLITIS
     Dosage: UNKNOWN
     Route: 058
  2. HYDROCHLOROTHIAZIDE [Concomitant]
     Dosage: UNKNOWN
     Route: 048
  3. RAMIPRIL [Concomitant]
     Dosage: UNKNOWN
     Route: 048
  4. DOLIPRANE [Concomitant]
     Dosage: UNKNOWN
     Route: 048
  5. AMLODIPINE [Concomitant]
     Dosage: UNKNOWN
     Route: 048

REACTIONS (2)
  - HYPERTRIGLYCERIDAEMIA [None]
  - PANCREATITIS ACUTE [None]
